FAERS Safety Report 9306805 (Version 1)
Quarter: 2013Q1

REPORT INFORMATION
  Report Type: Spontaneous
  Country: JP (occurrence: None)
  Receive Date: 20130321
  Receipt Date: 20130321
  Transmission Date: 20140127
  Serious: Yes (Other)
  Sender: FDA-Public Use
  Company Number: TCI2012A04935

PATIENT
  Age: 89 Year
  Sex: Female

DRUGS (8)
  1. NESINA [Suspect]
     Route: 048
     Dates: start: 20110803, end: 20120201
  2. BLOPRESS (CANDESARTAN CILEXETIL) [Concomitant]
  3. TAKEPRON OD TABLETS (LANSOPRAZOLE) [Concomitant]
  4. BAYASPIRIN (ACETYLSALICYLIC ACID) (ACETYLSALICYLIC ACID) [Concomitant]
  5. AMLODIPINE OD (AMLODIPINE BESILATE) [Concomitant]
  6. LIPOVATOL (SIMVASTATIN) [Concomitant]
  7. URSO (URSODEOXYCHOLIC ACID) [Concomitant]
  8. ALCADOL (ALFACALCIDOL) [Concomitant]

REACTIONS (2)
  - Pancreatitis [None]
  - Amylase increased [None]
